FAERS Safety Report 4967501-9 (Version None)
Quarter: 2006Q2

REPORT INFORMATION
  Report Type: 
  Country: None (occurrence: None)
  Receive Date: 20060407
  Receipt Date: 20060407
  Transmission Date: 20061013
  Serious: Yes (Hospitalization)
  Sender: FDA-Public Use
  Company Number: None

PATIENT
  Age: 77 Year
  Sex: Male

DRUGS (5)
  1. VELCADE [Suspect]
     Indication: DIFFUSE LARGE B-CELL LYMPHOMA
     Dosage: 1.3MG/M2  (DAY 1+ 4 OF 21 DAY CYCLE)
     Dates: start: 20060209, end: 20060330
  2. CYCLOPHOSPHAMIDE [Suspect]
     Indication: DIFFUSE LARGE B-CELL LYMPHOMA
     Dosage: (DAY 1 OF 21DAY CYCLE)
     Dates: start: 20060209, end: 20060330
  3. DOXORUBICIN HCL [Suspect]
     Indication: DIFFUSE LARGE B-CELL LYMPHOMA
     Dosage: (DAY 1 OF 21 DAY CYCLE)
     Dates: start: 20060209, end: 20060330
  4. VINCRISTINE [Suspect]
     Indication: DIFFUSE LARGE B-CELL LYMPHOMA
     Dosage: (DAY 1 OF 21 DAY CYCLE)
     Dates: start: 20060209, end: 20060330
  5. PREDNISOLONE [Suspect]
     Indication: DIFFUSE LARGE B-CELL LYMPHOMA
     Dosage: (DAY 1 OF 21 DAY CYCLE)
     Dates: start: 20060209, end: 20060330

REACTIONS (3)
  - ARRHYTHMIA [None]
  - HYPOTENSION [None]
  - PNEUMONIA [None]
